FAERS Safety Report 7902621-8 (Version None)
Quarter: 2011Q4

REPORT INFORMATION
  Report Type: 
  Country: None (occurrence: None)
  Receive Date: 20111108
  Receipt Date: 20111024
  Transmission Date: 20120403
  Serious: Yes (Hospitalization, Other)
  Sender: FDA-Public Use
  Company Number: PHHY2008JP11878

PATIENT
  Sex: Male

DRUGS (21)
  1. SIROLIMUS [Concomitant]
  2. BAKTAR [Concomitant]
     Route: 048
  3. CYCLOSPORINE [Concomitant]
  4. NEORAL [Suspect]
     Dosage: 60 MG, DAILY
     Route: 048
     Dates: start: 20080601, end: 20081026
  5. CERTICAN [Suspect]
     Dosage: 0.5 MG
     Route: 048
     Dates: start: 20061204, end: 20070808
  6. NEORAL [Suspect]
     Dosage: 36 MG, DAILY
     Route: 048
     Dates: end: 20050515
  7. NEORAL [Suspect]
     Dosage: 54 MG, DAILY
     Route: 048
     Dates: start: 20050719, end: 20050908
  8. NEORAL [Suspect]
     Dosage: 60 MG, DAILY
     Route: 048
     Dates: start: 20050909, end: 20080101
  9. ZOVIRAX [Concomitant]
  10. CERTICAN [Suspect]
     Dosage: 0.75 MG, DAILY
     Route: 048
     Dates: start: 20070809, end: 20080104
  11. NEORAL [Suspect]
     Dosage: 51 MG, DAILY
     Route: 048
     Dates: start: 20050516, end: 20050523
  12. NEORAL [Suspect]
     Dosage: 60 MG, DAILY
     Route: 048
     Dates: end: 20080601
  13. VALGANCICLOVIR [Concomitant]
  14. CERTICAN [Suspect]
     Dosage: 1 MG, DAILY
     Route: 048
     Dates: start: 20080520, end: 20081026
  15. NEORAL [Suspect]
     Dosage: 60 MG, DAILY
     Route: 048
     Dates: start: 20031021
  16. NEORAL [Suspect]
     Dosage: 60 MG, DAILY
     Route: 048
     Dates: start: 20050627, end: 20050718
  17. MYCOPHENOLATE MOFETIL (CELLCEPT) [Concomitant]
  18. NEORAL [Suspect]
     Dosage: 45 MG, DAILY
     Route: 048
     Dates: start: 20050524, end: 20050626
  19. POLYGAM S/D [Concomitant]
  20. CERTICAN [Suspect]
     Indication: HEART TRANSPLANT
     Dosage: 0.5 MG, DAIKY
     Route: 048
     Dates: start: 20051208, end: 20060320
  21. NEORAL [Suspect]
     Dosage: 69 MG, DAILY
     Route: 048
     Dates: start: 20030501, end: 20031020

REACTIONS (5)
  - STOMATITIS [None]
  - PNEUMONIA [None]
  - ORAL HERPES [None]
  - HYPERCHOLESTEROLAEMIA [None]
  - ANAL FISTULA [None]
